FAERS Safety Report 16466278 (Version 2)
Quarter: 2019Q3

REPORT INFORMATION
  Report Type: Report from Study
  Country: GB (occurrence: GB)
  Receive Date: 20190622
  Receipt Date: 20190703
  Transmission Date: 20191004
  Serious: Yes (Other)
  Sender: FDA-Public Use
  Company Number: GB-ROCHE-2340303

PATIENT

DRUGS (1)
  1. LUCENTIS [Suspect]
     Active Substance: RANIBIZUMAB
     Indication: NEOVASCULAR AGE-RELATED MACULAR DEGENERATION
     Route: 031

REACTIONS (5)
  - Retinal exudates [Unknown]
  - Visual acuity reduced [Not Recovered/Not Resolved]
  - Drug ineffective [Unknown]
  - Abnormal sensation in eye [Unknown]
  - Dry eye [Unknown]
